FAERS Safety Report 17347566 (Version 1)
Quarter: 2020Q1

REPORT INFORMATION
  Report Type: Spontaneous
  Country: KZ (occurrence: KZ)
  Receive Date: 20200130
  Receipt Date: 20200130
  Transmission Date: 20200409
  Serious: Yes (Hospitalization, Disabling)
  Sender: FDA-Public Use
  Company Number: KZ-ROCHE-2535726

PATIENT
  Sex: Female
  Weight: 72 kg

DRUGS (1)
  1. BONVIVA [Suspect]
     Active Substance: IBANDRONATE SODIUM
     Indication: OSTEOPENIA
     Dosage: 3 MG/3 ML
     Route: 058
     Dates: start: 20200120, end: 20200120

REACTIONS (9)
  - Asthenia [Unknown]
  - Body temperature increased [Recovering/Resolving]
  - Incorrect route of product administration [Unknown]
  - Blood pressure increased [Unknown]
  - Heart rate increased [Unknown]
  - Vision blurred [Unknown]
  - Injection site reaction [Unknown]
  - Medication error [Unknown]
  - Sensation of blood flow [Unknown]

NARRATIVE: CASE EVENT DATE: 20200120
